FAERS Safety Report 13603421 (Version 1)
Quarter: 2017Q2

REPORT INFORMATION
  Report Type: Spontaneous
  Country: US (occurrence: US)
  Receive Date: 20170601
  Receipt Date: 20170601
  Transmission Date: 20170912
  Serious: No
  Sender: FDA-Public Use
  Company Number: US-OTSUKA-2016_021135

PATIENT
  Age: 57 Year
  Sex: Male

DRUGS (5)
  1. METOPROLOL [Concomitant]
     Indication: PRODUCT USED FOR UNKNOWN INDICATION
     Dosage: UNK
     Route: 065
  2. SAMSCA [Suspect]
     Indication: HYPOOSMOLAR STATE
     Dosage: 30 MG, QD (1 TABLET- 30 MG)
     Route: 048
     Dates: start: 20160819
  3. SPIRONOLACTONE [Concomitant]
     Indication: PRODUCT USED FOR UNKNOWN INDICATION
     Dosage: UNK
     Route: 065
  4. FUROSEMIDE [Concomitant]
     Indication: PRODUCT USED FOR UNKNOWN INDICATION
     Dosage: UNK
     Route: 065
  5. SAMSCA [Suspect]
     Indication: HYPONATRAEMIA

REACTIONS (3)
  - Incorrect drug administration duration [Unknown]
  - Off label use [Unknown]
  - No adverse event [Unknown]

NARRATIVE: CASE EVENT DATE: 20160819
